FAERS Safety Report 7463717-0 (Version None)
Quarter: 2011Q2

REPORT INFORMATION
  Report Type: 
  Country: None (occurrence: None)
  Receive Date: 20110506
  Receipt Date: 20110324
  Transmission Date: 20111010
  Serious: Yes (Other)
  Sender: FDA-Public Use
  Company Number: US-BAYER-201023174NA

PATIENT
  Age: 22 Year
  Sex: Female
  Weight: 52 kg

DRUGS (25)
  1. YAZ [Suspect]
     Indication: MENSTRUAL DISORDER
  2. YASMIN [Suspect]
     Indication: PREMENSTRUAL SYNDROME
  3. YASMIN [Suspect]
     Indication: MENSTRUAL DISORDER
  4. PEPCID [Concomitant]
  5. NABUMETONE [Concomitant]
     Dosage: UNK
     Dates: start: 20050101
  6. OXYCODONE HCL AND ACETAMINOPHEN [Concomitant]
     Indication: PAIN
     Dosage: UNK
     Dates: start: 20080528
  7. HYDROCODONE BITARTRATE AND ACETAMINOPHEN [Concomitant]
     Indication: PAIN
     Dosage: UNK
     Dates: start: 20080708
  8. FLUCONAZOLE [Concomitant]
     Dosage: 150 MG, UNK
     Dates: start: 20090114
  9. YAZ [Suspect]
     Indication: PREMENSTRUAL SYNDROME
  10. DICYCLOMINE [Concomitant]
     Dosage: 10 MG, UNK
     Dates: start: 20080920
  11. METHYLPREDNISOLONE [Concomitant]
     Dosage: UNK
     Dates: start: 20090325
  12. PREVACID [Concomitant]
     Dosage: 30 MG, UNK
     Dates: start: 20081112
  13. IBUPROFEN [Concomitant]
     Dosage: UNK
     Dates: start: 20090101
  14. YASMIN [Suspect]
     Indication: ORAL CONTRACEPTION
     Dosage: UNK
     Route: 048
     Dates: start: 20020417, end: 20080109
  15. CEFZIL [Concomitant]
     Indication: UPPER RESPIRATORY TRACT INFECTION
     Dosage: 250 MG, UNK
  16. MUCINEX [Concomitant]
     Indication: UPPER RESPIRATORY TRACT INFECTION
  17. AZITHROMYCIN [Concomitant]
     Dosage: 250 MG, UNK
     Dates: start: 20080930
  18. AMOXICILLIN W/CLAVULANIC ACID [Concomitant]
     Dosage: UNK
     Dates: start: 20090217
  19. PROTONIX [Concomitant]
  20. LEVBID [Concomitant]
  21. IMODIUM [Concomitant]
  22. RELAFEN [Concomitant]
     Dosage: UNK
     Dates: start: 20050101
  23. YAZ [Suspect]
     Indication: ORAL CONTRACEPTION
     Dosage: UNK
     Route: 048
     Dates: start: 20080109, end: 20090916
  24. COLESTIPOL HYDROCHLORIDE [Concomitant]
     Dosage: 1 G, UNK
     Dates: start: 20081112
  25. MELOXICAM [Concomitant]
     Dosage: UNK
     Dates: start: 20070101

REACTIONS (7)
  - CHOLECYSTITIS ACUTE [None]
  - UPPER RESPIRATORY TRACT INFECTION [None]
  - BILIARY COLIC [None]
  - ABDOMINAL PAIN [None]
  - EPIGASTRIC DISCOMFORT [None]
  - POST CHOLECYSTECTOMY SYNDROME [None]
  - CHEST DISCOMFORT [None]
